FAERS Safety Report 14548642 (Version 1)
Quarter: 2018Q1

REPORT INFORMATION
  Report Type: Spontaneous
  Country: US (occurrence: US)
  Receive Date: 20180219
  Receipt Date: 20180219
  Transmission Date: 20180509
  Serious: Yes (Other)
  Sender: FDA-Public Use
  Company Number: US-ROCHE-1911814

PATIENT
  Age: 61 Year
  Sex: Female

DRUGS (6)
  1. PREDNISONE. [Concomitant]
     Active Substance: PREDNISONE
     Indication: URTICARIA
     Dosage: YES
     Route: 048
     Dates: start: 2015
  2. SINGULAIR [Concomitant]
     Active Substance: MONTELUKAST SODIUM
     Indication: URTICARIA
     Dosage: YES
     Route: 048
     Dates: start: 201510
  3. PREDNISONE. [Concomitant]
     Active Substance: PREDNISONE
     Dosage: NO
     Route: 065
     Dates: start: 20170220, end: 20170223
  4. TAGAMET [Concomitant]
     Active Substance: CIMETIDINE
     Indication: URTICARIA
     Route: 048
     Dates: start: 201508
  5. XYZAL [Concomitant]
     Active Substance: LEVOCETIRIZINE DIHYDROCHLORIDE
     Indication: URTICARIA
     Dosage: YES
     Route: 048
  6. XOLAIR [Suspect]
     Active Substance: OMALIZUMAB
     Indication: CHRONIC SPONTANEOUS URTICARIA
     Dosage: NO
     Route: 065
     Dates: start: 20170220, end: 20170320

REACTIONS (1)
  - Hypersensitivity [Unknown]

NARRATIVE: CASE EVENT DATE: 20170220
